FAERS Safety Report 13752988 (Version 1)
Quarter: 2017Q3

REPORT INFORMATION
  Report Type: Spontaneous
  Country: US (occurrence: US)
  Receive Date: 20170714
  Receipt Date: 20170714
  Transmission Date: 20171127
  Serious: No
  Sender: FDA-Public Use
  Company Number: US-GLAXOSMITHKLINE-US2017105567

PATIENT
  Age: 85 Year
  Sex: Female

DRUGS (12)
  1. LEVOTHYROXIN [Concomitant]
     Active Substance: LEVOTHYROXINE
  2. ADVAIR DISKUS [Suspect]
     Active Substance: FLUTICASONE PROPIONATE\SALMETEROL XINAFOATE
     Indication: BRONCHITIS CHRONIC
  3. LOSARTAN. [Suspect]
     Active Substance: LOSARTAN
     Indication: PRODUCT USED FOR UNKNOWN INDICATION
     Dosage: UNK
  4. CALCIUM [Concomitant]
     Active Substance: CALCIUM
  5. XARELTO [Concomitant]
     Active Substance: RIVAROXABAN
  6. DICYCLOMINE [Concomitant]
     Active Substance: DICYCLOMINE HYDROCHLORIDE
     Dosage: UNK UNK, PRN
  7. OMEPRAZOLE. [Concomitant]
     Active Substance: OMEPRAZOLE
  8. ADVAIR DISKUS [Suspect]
     Active Substance: FLUTICASONE PROPIONATE\SALMETEROL XINAFOATE
     Indication: ASTHMA
     Dosage: 1 PUFF(S), BID
     Dates: start: 2012
  9. AMLODIPINE [Concomitant]
     Active Substance: AMLODIPINE BESYLATE
  10. MONTELUKAST [Concomitant]
     Active Substance: MONTELUKAST SODIUM
  11. SIMVASTATIN. [Concomitant]
     Active Substance: SIMVASTATIN
  12. TRAMADOL. [Concomitant]
     Active Substance: TRAMADOL

REACTIONS (12)
  - Atypical pneumonia [Recovering/Resolving]
  - Hypotension [Recovered/Resolved]
  - Blood pressure increased [Unknown]
  - Sneezing [Recovering/Resolving]
  - Chest pain [Recovered/Resolved]
  - Irritable bowel syndrome [Unknown]
  - Abdominal rigidity [Unknown]
  - Hypertension [Unknown]
  - Osteoporosis [Unknown]
  - Anaemia [Unknown]
  - Cough [Recovering/Resolving]
  - Arthritis [Unknown]

NARRATIVE: CASE EVENT DATE: 201704
